FAERS Safety Report 9023558 (Version 1)
Quarter: 2013Q1

REPORT INFORMATION
  Report Type: Spontaneous
  Country: AR (occurrence: AR)
  Receive Date: 20130121
  Receipt Date: 20130121
  Transmission Date: 20140127
  Serious: Yes (Other)
  Sender: FDA-Public Use
  Company Number: PHHY2013AR005383

PATIENT
  Sex: Male

DRUGS (1)
  1. RITALIN LA [Suspect]
     Indication: BIPOLAR I DISORDER
     Dosage: 40 MG DAILY
     Route: 048

REACTIONS (3)
  - Blood glucose increased [Unknown]
  - Oral candidiasis [Unknown]
  - Irritability [Unknown]
